FAERS Safety Report 4850677-1 (Version None)
Quarter: 2005Q4

REPORT INFORMATION
  Report Type: 
  Country: None (occurrence: None)
  Receive Date: 20051208
  Receipt Date: 20051208
  Transmission Date: 20060501
  Serious: Yes (Other)
  Sender: FDA-Public Use
  Company Number: None

PATIENT

DRUGS (1)
  1. FENTANYL [Suspect]
     Dosage: 25 MG TRANSDERMAL PATCH
     Route: 062

REACTIONS (4)
  - ANOREXIA [None]
  - GASTROINTESTINAL DISORDER [None]
  - NERVOUSNESS [None]
  - WEIGHT DECREASED [None]
